FAERS Safety Report 15349447 (Version 1)
Quarter: 2018Q3

REPORT INFORMATION
  Report Type: Report from Study
  Country: US (occurrence: US)
  Receive Date: 20180904
  Receipt Date: 20180904
  Transmission Date: 20181010
  Serious: Yes (Death, Hospitalization)
  Sender: FDA-Public Use
  Company Number: US-ACTELION-A-NJ2018-165207

PATIENT
  Age: 76 Year
  Sex: Female
  Weight: 73.16 kg

DRUGS (6)
  1. ADEMPAS [Concomitant]
     Active Substance: RIOCIGUAT
     Dosage: UNK
     Route: 048
     Dates: start: 20171213
  2. OXYGEN. [Concomitant]
     Active Substance: OXYGEN
     Dosage: 4 L/MIN, UNK
     Route: 045
  3. REMODULIN [Concomitant]
     Active Substance: TREPROSTINIL
     Dosage: 14.5 NG/KG, PER MIN
     Route: 042
     Dates: start: 20171213
  4. OPSUMIT [Suspect]
     Active Substance: MACITENTAN
     Indication: PULMONARY ARTERIAL HYPERTENSION
     Dosage: 10 MG, QD
     Route: 048
     Dates: start: 20170914, end: 20180827
  5. ADEMPAS [Concomitant]
     Active Substance: RIOCIGUAT
     Dosage: 2 MG, TID
     Dates: start: 201710
  6. OXYGEN. [Concomitant]
     Active Substance: OXYGEN
     Dosage: 5 L/MIN, UNK
     Route: 045

REACTIONS (15)
  - Dizziness [Unknown]
  - Oedema peripheral [Unknown]
  - Respiratory failure [Unknown]
  - Oxygen consumption increased [Not Recovered/Not Resolved]
  - Dyspnoea at rest [Unknown]
  - Diarrhoea [Unknown]
  - Death [Fatal]
  - Ascites [Unknown]
  - Oxygen saturation decreased [Not Recovered/Not Resolved]
  - Fluid overload [Unknown]
  - Gastrointestinal haemorrhage [Unknown]
  - Weight increased [Unknown]
  - Jugular vein distension [Unknown]
  - Nausea [Unknown]
  - Dyspnoea [Unknown]

NARRATIVE: CASE EVENT DATE: 20171228
